FAERS Safety Report 4906982-3 (Version None)
Quarter: 2006Q1

REPORT INFORMATION
  Report Type: 
  Country: None (occurrence: None)
  Receive Date: 20060207
  Receipt Date: 20060119
  Transmission Date: 20060701
  Serious: Yes (Hospitalization)
  Sender: FDA-Public Use
  Company Number: 221774

PATIENT
  Age: 40 Year
  Sex: Male
  Weight: 105 kg

DRUGS (3)
  1. AVASTIN(BEVACIZUMAB) PWDR + SOLVENT,INFUSION SOLN, 100MG [Suspect]
     Indication: PANCREATIC CARCINOMA
     Dosage: 10 MG/M2,
     Dates: start: 20050426, end: 20050823
  2. ERLOTINIB (ERLOTINIB) TABLET, 150MG [Suspect]
     Indication: PANCREATIC CARCINOMA
     Dosage: 150 MG, QD, INTRAVENOUS
     Route: 042
     Dates: start: 20050426, end: 20050923
  3. GEMCITABINE (GEMCITABINE HYDROCHLORIDE) [Suspect]
     Indication: PANCREATIC CARCINOMA
     Dosage: 1000 MG/M2, QD, ORAL
     Route: 048
     Dates: start: 20050426, end: 20050920

REACTIONS (2)
  - DYSPNOEA [None]
  - HEPATIC FUNCTION ABNORMAL [None]
